FAERS Safety Report 10442410 (Version 2)
Quarter: 2014Q4

REPORT INFORMATION
  Report Type: Spontaneous
  Country: US (occurrence: None)
  Receive Date: 20140908
  Receipt Date: 20141006
  Transmission Date: 20150528
  Serious: Yes (Other)
  Sender: FDA-Public Use
  Company Number: 2014-US-010633

PATIENT
  Age: 55 Year
  Sex: Female
  Weight: 70.3 kg

DRUGS (1)
  1. XYREM [Suspect]
     Active Substance: SODIUM OXYBATE
     Indication: NARCOLEPSY
     Route: 048
     Dates: start: 20140806, end: 201408

REACTIONS (6)
  - Weight increased [None]
  - Blood glucose increased [None]
  - Binge eating [None]
  - Condition aggravated [None]
  - Blood glucose fluctuation [None]
  - Hypoaesthesia [None]

NARRATIVE: CASE EVENT DATE: 20140807
